FAERS Safety Report 15684170 (Version 2)
Quarter: 2019Q1

REPORT INFORMATION
  Report Type: Spontaneous
  Country: AU (occurrence: AU)
  Receive Date: 20181204
  Receipt Date: 20190118
  Transmission Date: 20190417
  Serious: Yes (Hospitalization)
  Sender: FDA-Public Use
  Company Number: AU-GW PHARMA-201809AUGW0364

PATIENT

DRUGS (7)
  1. CLOBAZAM. [Concomitant]
     Active Substance: CLOBAZAM
     Dosage: 2.5 MILLIGRAM
     Route: 065
     Dates: start: 20180929
  2. RUFINAMIDE [Concomitant]
     Active Substance: RUFINAMIDE
     Indication: PRODUCT USED FOR UNKNOWN INDICATION
     Dosage: 7.5 MILLILITER, BID
     Route: 065
     Dates: start: 20180531
  3. RUFINAMIDE [Concomitant]
     Active Substance: RUFINAMIDE
     Dosage: 1200 MILLIGRAM
     Route: 065
     Dates: start: 201806
  4. TOPIRAMATE. [Concomitant]
     Active Substance: TOPIRAMATE
     Indication: PRODUCT USED FOR UNKNOWN INDICATION
     Dosage: 100 MILLIGRAM, BID
     Route: 065
  5. CLOBAZAM. [Concomitant]
     Active Substance: CLOBAZAM
     Indication: PRODUCT USED FOR UNKNOWN INDICATION
     Dosage: 5 MILLIGRAM, QD AT NIGHT
     Route: 065
  6. EPIDIOLEX [Suspect]
     Active Substance: CANNABIDIOL
     Indication: EPILEPSY
     Dosage: 43 MG/KG, 1247 MILLIGRAM, QD
     Route: 048
     Dates: start: 20180531
  7. FELBAMATE. [Concomitant]
     Active Substance: FELBAMATE
     Indication: PRODUCT USED FOR UNKNOWN INDICATION
     Dosage: 10 MILLILITER, QD
     Route: 065
     Dates: start: 201605

REACTIONS (2)
  - Seizure cluster [Recovered/Resolved]
  - Generalised tonic-clonic seizure [Recovered/Resolved]

NARRATIVE: CASE EVENT DATE: 20180905
